FAERS Safety Report 9690530 (Version 2)
Quarter: 2014Q1

REPORT INFORMATION
  Report Type: Report from Study
  Country: GR (occurrence: GR)
  Receive Date: 20131115
  Receipt Date: 20140102
  Transmission Date: 20141002
  Serious: Yes (Hospitalization)
  Sender: FDA-Public Use
  Company Number: GR-ABBVIE-13P-066-1167750-00

PATIENT
  Age: 42 Year
  Sex: Female
  Weight: 97 kg

DRUGS (4)
  1. HUMIRA [Suspect]
     Indication: PSORIATIC ARTHROPATHY
     Route: 058
     Dates: start: 20111115
  2. HUMIRA [Suspect]
  3. MEDROL [Concomitant]
     Indication: PSORIATIC ARTHROPATHY
     Route: 048
     Dates: start: 20111215, end: 201201
  4. MEDROL [Concomitant]
     Indication: MENIERE^S DISEASE
     Route: 048
     Dates: start: 20120502, end: 20120529

REACTIONS (1)
  - Obesity [Recovered/Resolved]
